FAERS Safety Report 5670885-X (Version None)
Quarter: 2008Q1

REPORT INFORMATION
  Report Type: 
  Country: None (occurrence: None)
  Receive Date: 20080318
  Receipt Date: 20080311
  Transmission Date: 20080703
  Serious: Yes (Hospitalization)
  Sender: FDA-Public Use
  Company Number: A0711013A

PATIENT
  Age: 40 Year
  Sex: Female

DRUGS (2)
  1. PAXIL [Suspect]
     Dosage: 10MG PER DAY
     Route: 048
     Dates: start: 20070501, end: 20070501
  2. NO CONCURRENT MEDICATION [Concomitant]

REACTIONS (14)
  - BRUXISM [None]
  - EMOTIONAL DISORDER [None]
  - GAIT DISTURBANCE [None]
  - HEART RATE INCREASED [None]
  - HYPERACUSIS [None]
  - INSOMNIA [None]
  - MUSCLE TIGHTNESS [None]
  - MUSCLE TWITCHING [None]
  - NERVOUS SYSTEM DISORDER [None]
  - PAIN IN JAW [None]
  - PANIC ATTACK [None]
  - PARAESTHESIA [None]
  - PERIODIC LIMB MOVEMENT DISORDER [None]
  - TOOTHACHE [None]
